FAERS Safety Report 18617500 (Version 1)
Quarter: 2020Q4

REPORT INFORMATION
  Report Type: Report from Study
  Country: TR (occurrence: TR)
  Receive Date: 20201215
  Receipt Date: 20201215
  Transmission Date: 20210114
  Serious: Yes (Death)
  Sender: FDA-Public Use
  Company Number: NVSC2020TR330763

PATIENT
  Age: 68 Year
  Sex: Male

DRUGS (1)
  1. NILOTINIB [Suspect]
     Active Substance: NILOTINIB
     Indication: CHRONIC MYELOID LEUKAEMIA
     Dosage: 600 MG
     Route: 065
     Dates: start: 20190627, end: 20201203

REACTIONS (2)
  - Death [Fatal]
  - Areflexia [Unknown]

NARRATIVE: CASE EVENT DATE: 20201204
